FAERS Safety Report 8758924 (Version 1)
Quarter: 2012Q4

REPORT INFORMATION
  Report Type: 
  Country: DE (occurrence: DE)
  Receive Date: 20120829
  Receipt Date: 20120829
  Transmission Date: 20130627
  Serious: Yes (Other)
  Sender: FDA-Public Use
  Company Number: DE-JNJFOC-20120812462

PATIENT

DRUGS (8)
  1. ABCIXIMAB [Suspect]
     Indication: ACUTE MYOCARDIAL INFARCTION
     Dosage: bolus administered within 1 min
     Route: 022
  2. ABCIXIMAB [Suspect]
     Indication: PERCUTANEOUS CORONARY INTERVENTION
     Dosage: bolus administered within 1 min
     Route: 022
  3. ASPIRIN [Concomitant]
     Route: 065
  4. UNFRACTIONATED HEPARIN [Concomitant]
     Route: 065
  5. CLOPIDOGREL [Concomitant]
     Route: 065
  6. ANGIOTENSIN-CONVERTING ENZYME INHIBITORS [Concomitant]
     Route: 065
  7. BETA BLOCKERS, NOS [Concomitant]
     Route: 065
  8. STATINS [Concomitant]
     Route: 065

REACTIONS (1)
  - Pericardial effusion [Unknown]
